FAERS Safety Report 16278939 (Version 2)
Quarter: 2019Q2

REPORT INFORMATION
  Report Type: Report from Study
  Country: US (occurrence: US)
  Receive Date: 20190506
  Receipt Date: 20190520
  Transmission Date: 20190711
  Serious: No
  Sender: FDA-Public Use
  Company Number: US-ACTELION-A-NJ2019-189960

PATIENT
  Age: 6 Year
  Sex: Female

DRUGS (5)
  1. COREG [Concomitant]
     Active Substance: CARVEDILOL
     Dosage: 3.125 MG, BID
     Route: 048
     Dates: start: 20181116
  2. SILDENAFIL. [Concomitant]
     Active Substance: SILDENAFIL
     Dosage: 15 MG, TID
     Route: 048
     Dates: start: 20180725
  3. SPIRONOLACTONE. [Concomitant]
     Active Substance: SPIRONOLACTONE
     Dosage: 15 MG, BID
     Route: 048
     Dates: start: 20181116
  4. ASPIRIN. [Concomitant]
     Active Substance: ASPIRIN
     Dosage: 40 MG, QD
     Route: 048
     Dates: start: 20160802
  5. BOSENTAN TABLET 32 MG PED US [Suspect]
     Active Substance: BOSENTAN
     Indication: PULMONARY HYPERTENSION
     Dosage: 32 MG, BID
     Route: 048
     Dates: start: 20190109

REACTIONS (1)
  - Catheterisation cardiac [Recovered/Resolved]

NARRATIVE: CASE EVENT DATE: 20190411
